FAERS Safety Report 25747546 (Version 5)
Quarter: 2025Q4

REPORT INFORMATION
  Report Type: Spontaneous
  Country: US (occurrence: US)
  Receive Date: 20250901
  Receipt Date: 20251209
  Transmission Date: 20260118
  Serious: Yes (Other)
  Sender: MERCK SHARP & DOHME LLC
  Company Number: US-009507513-2324152

PATIENT
  Sex: Female
  Weight: 99.337 kg

DRUGS (41)
  1. SOTATERCEPT [Suspect]
     Active Substance: SOTATERCEPT
     Indication: Pulmonary arterial hypertension
     Dosage: 4 DOSES (0.7 MG/KG) 2 MONTHS
     Route: 058
     Dates: start: 20240701
  2. SOTATERCEPT [Suspect]
     Active Substance: SOTATERCEPT
     Dosage: INITIATED DOWN-TITRATION OF SOTATERCEPT
     Dates: start: 2025
  3. SOTATERCEPT [Suspect]
     Active Substance: SOTATERCEPT
     Route: 058
     Dates: start: 2025
  4. SELEXIPAG [Concomitant]
     Active Substance: SELEXIPAG
  5. AMBRISENTAN [Concomitant]
     Active Substance: AMBRISENTAN
  6. RIOCIGUAT [Concomitant]
     Active Substance: RIOCIGUAT
  7. CLARITIN [Concomitant]
     Active Substance: LORATADINE
  8. PREDNISONE [Concomitant]
     Active Substance: PREDNISONE
  9. CERAVE ITCH RELIEF MOISTURIZING [Concomitant]
     Active Substance: PRAMOXINE HYDROCHLORIDE
  10. IRON [Concomitant]
     Active Substance: IRON
  11. DESOXIMETASONE [Concomitant]
     Active Substance: DESOXIMETASONE
  12. SPIRONOLACTONE [Concomitant]
     Active Substance: SPIRONOLACTONE
  13. MONTELUKAST SODIUM [Concomitant]
     Active Substance: MONTELUKAST SODIUM
  14. DIPHENHYDRAMINE HYDROCHLORIDE [Concomitant]
     Active Substance: DIPHENHYDRAMINE HYDROCHLORIDE
  15. CETIRIZINE HCL [Concomitant]
     Active Substance: CETIRIZINE HYDROCHLORIDE
  16. MIDODRINE HYDROCHLORIDE [Concomitant]
     Active Substance: MIDODRINE HYDROCHLORIDE
  17. GABAPENTIN [Concomitant]
     Active Substance: GABAPENTIN
  18. HYDROXYZINE HYDROCHLORIDE [Concomitant]
     Active Substance: HYDROXYZINE HYDROCHLORIDE
  19. TRIAMCINOLONE ACETONIDE [Concomitant]
     Active Substance: TRIAMCINOLONE ACETONIDE
  20. TORSEMIDE [Concomitant]
     Active Substance: TORSEMIDE
  21. UBRELVY [Concomitant]
     Active Substance: UBROGEPANT
  22. ONDANSETRON HYDROCHLORIDE [Concomitant]
     Active Substance: ONDANSETRON HYDROCHLORIDE
  23. SUMATRIPTAN SUCCINATE [Concomitant]
     Active Substance: SUMATRIPTAN SUCCINATE
  24. DOCUSATE SODIUM [Concomitant]
     Active Substance: DOCUSATE SODIUM
  25. FAMOTIDINE [Concomitant]
     Active Substance: FAMOTIDINE
  26. METHOCARBAMOL [Concomitant]
     Active Substance: METHOCARBAMOL
  27. POTASSIUM CHLORIDE [Concomitant]
     Active Substance: POTASSIUM CHLORIDE
  28. FIORICET [Concomitant]
     Active Substance: ACETAMINOPHEN\BUTALBITAL\CAFFEINE
  29. MOMETASONE FUROATE [Concomitant]
     Active Substance: MOMETASONE FUROATE
  30. SODIUM CHLORIDE [Concomitant]
     Active Substance: SODIUM CHLORIDE
  31. MACITENTAN\TADALAFIL [Concomitant]
     Active Substance: MACITENTAN\TADALAFIL
  32. SODIUM CHLORIDE [Concomitant]
     Active Substance: SODIUM CHLORIDE
  33. SODIUM CHLORIDE [Concomitant]
     Active Substance: SODIUM CHLORIDE
  34. AQUAPHOR [Concomitant]
     Active Substance: PETROLATUM
  35. DULOXETINE HYDROCHLORIDE [Concomitant]
     Active Substance: DULOXETINE HYDROCHLORIDE
  36. CARBINOXAMINE MALEATE [Concomitant]
     Active Substance: CARBINOXAMINE MALEATE
  37. ALBUTEROL SULFATE [Concomitant]
     Active Substance: ALBUTEROL SULFATE
  38. XOLAIR [Concomitant]
     Active Substance: OMALIZUMAB
  39. METOLAZONE [Concomitant]
     Active Substance: METOLAZONE
  40. VELETRI [Concomitant]
     Active Substance: EPOPROSTENOL
  41. DOXYCYCLINE HYCLATE [Concomitant]
     Active Substance: DOXYCYCLINE HYCLATE

REACTIONS (11)
  - Pericardial effusion [Recovered/Resolved]
  - Drug hypersensitivity [Unknown]
  - Liquid product physical issue [Unknown]
  - Arthralgia [Unknown]
  - Product dose omission issue [Unknown]
  - Urticaria [Unknown]
  - Peripheral swelling [Unknown]
  - Pain in extremity [Recovering/Resolving]
  - Joint swelling [Unknown]
  - Joint stiffness [Unknown]
  - Joint range of motion decreased [Unknown]

NARRATIVE: CASE EVENT DATE: 20250101
